FAERS Safety Report 12098594 (Version 6)
Quarter: 2017Q1

REPORT INFORMATION
  Report Type: Report from Study
  Country: CA (occurrence: CA)
  Receive Date: 20160222
  Receipt Date: 20170227
  Transmission Date: 20170428
  Serious: Yes (Other)
  Sender: FDA-Public Use
  Company Number: CA-ROCHE-1637460

PATIENT
  Age: 70 Year
  Sex: Male

DRUGS (8)
  1. EZETROL [Concomitant]
     Active Substance: EZETIMIBE
  2. ESBRIET [Suspect]
     Active Substance: PIRFENIDONE
     Indication: IDIOPATHIC PULMONARY FIBROSIS
     Route: 048
     Dates: start: 20150821
  3. ACETYLSALICYLIC ACID [Concomitant]
     Active Substance: ASPIRIN
  4. ESBRIET [Interacting]
     Active Substance: PIRFENIDONE
     Route: 048
     Dates: start: 20150828
  5. ESBRIET [Interacting]
     Active Substance: PIRFENIDONE
     Route: 048
     Dates: start: 20150904
  6. LOSEC [Interacting]
     Active Substance: OMEPRAZOLE
     Indication: PRODUCT USED FOR UNKNOWN INDICATION
     Route: 065
  7. LIPITOR [Concomitant]
     Active Substance: ATORVASTATIN CALCIUM
  8. VENTOLIN [Concomitant]
     Active Substance: ALBUTEROL SULFATE

REACTIONS (10)
  - Fatigue [Recovering/Resolving]
  - Forced vital capacity decreased [Unknown]
  - Decreased appetite [Recovering/Resolving]
  - Cough [Not Recovered/Not Resolved]
  - Pulmonary function test decreased [Not Recovered/Not Resolved]
  - Red blood cell count increased [Unknown]
  - Drug interaction [Unknown]
  - Thrombosis [Not Recovered/Not Resolved]
  - Dyspepsia [Recovering/Resolving]
  - Lethargy [Not Recovered/Not Resolved]

NARRATIVE: CASE EVENT DATE: 20150904
